FAERS Safety Report 8156768-4 (Version None)
Quarter: 2012Q1

REPORT INFORMATION
  Report Type: 
  Country: None (occurrence: None)
  Receive Date: 20120222
  Receipt Date: 20120214
  Transmission Date: 20120608
  Serious: Yes (Other)
  Sender: FDA-Public Use
  Company Number: US-BAYER-200940216NA

PATIENT
  Age: 59 Year
  Sex: Male

DRUGS (17)
  1. ACETYLSALICYLIC ACID SRT [Concomitant]
     Dosage: UNK
     Route: 048
     Dates: start: 20070824
  2. TRASYLOL [Suspect]
     Indication: CORONARY ARTERY BYPASS
     Dosage: 400 ML, UNK
     Route: 042
     Dates: start: 20070827, end: 20070827
  3. SUCCINYLCHOLINE CHLORIDE [Concomitant]
     Dosage: 100 MG, UNK
     Route: 042
     Dates: start: 20070827
  4. INSULIN [INSULIN] [Concomitant]
     Dosage: 50 UNITS IN MORNING
     Route: 058
  5. COUMADIN [Concomitant]
     Dosage: 5 MG, UNK
     Route: 048
     Dates: start: 20051109
  6. VERSED [Concomitant]
     Dosage: 5 MG, UNK
     Route: 042
     Dates: start: 20070827
  7. ROBAXIN [Concomitant]
     Dosage: 750 MG, UNK
     Route: 048
  8. CRESTOR [Concomitant]
     Dosage: 10 MG, UNK
     Route: 048
     Dates: start: 20060221
  9. CIALIS [Concomitant]
     Dosage: 20 MG, UNK
     Route: 048
  10. DOPAMINE HCL [Concomitant]
     Dosage: 8 ML/HR
     Route: 042
     Dates: start: 20070827
  11. INSULIN [INSULIN] [Concomitant]
     Dosage: 20 UNITS IN EVENING
     Route: 058
  12. PRINIVIL [Concomitant]
     Route: 048
  13. NAPROXEN [Concomitant]
     Dosage: 500 MG, UNK
     Route: 048
  14. PLAVIX [Concomitant]
     Dosage: 75 MG, UNK
     Route: 048
     Dates: start: 20070824
  15. PANCURONIUM BROMIDE [Concomitant]
     Dosage: 10 MG, UNK
     Route: 042
     Dates: start: 20070827
  16. HEPARIN [Concomitant]
     Dosage: 30000 U, UNK
     Route: 042
     Dates: start: 20070827
  17. LEVITRA [Concomitant]
     Dosage: 10 MG, UNK
     Route: 048
     Dates: start: 20070119

REACTIONS (22)
  - WOUND DEHISCENCE [None]
  - RENAL FAILURE [None]
  - UNEVALUABLE EVENT [None]
  - PAIN [None]
  - EMOTIONAL DISTRESS [None]
  - PSYCHOLOGICAL TRAUMA [None]
  - COR PULMONALE [None]
  - LEFT VENTRICULAR HYPERTROPHY [None]
  - DIABETIC NEPHROPATHY [None]
  - RENAL IMPAIRMENT [None]
  - ANXIETY [None]
  - ANHEDONIA [None]
  - MYOCARDIAL ISCHAEMIA [None]
  - MULTI-ORGAN FAILURE [None]
  - RENAL FAILURE CHRONIC [None]
  - FEAR [None]
  - INJURY [None]
  - TACHYARRHYTHMIA [None]
  - HAEMODIALYSIS [None]
  - RENAL INJURY [None]
  - STRESS [None]
  - AORTIC ARTERIOSCLEROSIS [None]
